FAERS Safety Report 8000652-3 (Version None)
Quarter: 2011Q4

REPORT INFORMATION
  Report Type: 
  Country: None (occurrence: None)
  Receive Date: 20111216
  Receipt Date: 20111202
  Transmission Date: 20120403
  Serious: Yes (Other)
  Sender: FDA-Public Use
  Company Number: CA-1189387

PATIENT
  Age: 33 Year
  Sex: Male

DRUGS (2)
  1. TETRACAINE 0.5 % EYE DROPS (TETRACAINE 0.5%) (NONE) [Suspect]
     Dosage: (OPHTHALMIC)
     Route: 047
  2. PROPARACAINE HCL [Suspect]
     Dosage: (OPHTHALMIC)
     Route: 047

REACTIONS (9)
  - CORNEAL INFILTRATES [None]
  - DRUG ABUSE [None]
  - DRUG HYPERSENSITIVITY [None]
  - CORNEAL TRANSPLANT [None]
  - ULCERATIVE KERATITIS [None]
  - CORNEAL NEOVASCULARISATION [None]
  - EYELID OEDEMA [None]
  - CORNEAL EPITHELIUM DEFECT [None]
  - CONJUNCTIVAL OEDEMA [None]
